FAERS Safety Report 6509093-9 (Version None)
Quarter: 2009Q4

REPORT INFORMATION
  Report Type: 
  Country: None (occurrence: None)
  Receive Date: 20091221
  Receipt Date: 20091217
  Transmission Date: 20100525
  Serious: Yes (Hospitalization, Other)
  Sender: FDA-Public Use
  Company Number: JP-BAXTER-2009BH019359

PATIENT
  Sex: Male

DRUGS (2)
  1. EXTRANEAL [Suspect]
     Indication: GLOMERULONEPHRITIS
     Route: 033
     Dates: start: 20050101
  2. DIANEAL LOW CALCIUM W/ DEXTROSE 1.5% [Suspect]
     Indication: GLOMERULONEPHRITIS
     Route: 033
     Dates: start: 20080101

REACTIONS (6)
  - CARDIAC FAILURE [None]
  - DECREASED APPETITE [None]
  - LIVER FUNCTION TEST ABNORMAL [None]
  - OEDEMA [None]
  - PERITONEAL CLOUDY EFFLUENT [None]
  - THIRST [None]
